FAERS Safety Report 6977935-9 (Version None)
Quarter: 2010Q3

REPORT INFORMATION
  Report Type: 
  Country: None (occurrence: None)
  Receive Date: 20100913
  Receipt Date: 20100831
  Transmission Date: 20110219
  Serious: Yes (Other)
  Sender: FDA-Public Use
  Company Number: PHHY2010AU50721

PATIENT
  Sex: Female
  Weight: 58 kg

DRUGS (1)
  1. EXJADE [Suspect]
     Indication: IRON OVERLOAD
     Dosage: 1000 MG, QD
     Dates: start: 20100719, end: 20100726

REACTIONS (2)
  - DERMATITIS ALLERGIC [None]
  - ERYTHEMA [None]
